FAERS Safety Report 26049603 (Version 1)
Quarter: 2025Q4

REPORT INFORMATION
  Report Type: Spontaneous
  Country: US (occurrence: US)
  Receive Date: 20251115
  Receipt Date: 20251115
  Transmission Date: 20260118
  Serious: No
  Sender: SANDOZ
  Company Number: US-SANDOZ-SDZ2025US085434

PATIENT
  Sex: Female

DRUGS (1)
  1. ALBUTEROL SULFATE [Suspect]
     Active Substance: ALBUTEROL SULFATE
     Indication: Asthma
     Dosage: DOSAGE: INHALE TWO PUFFS EVERY 4 HOURS
     Route: 055

REACTIONS (3)
  - Product dose omission issue [Unknown]
  - Device issue [Unknown]
  - Product delivery mechanism issue [Unknown]
